FAERS Safety Report 19826573 (Version 6)
Quarter: 2022Q4

REPORT INFORMATION
  Report Type: Spontaneous
  Country: US (occurrence: US)
  Receive Date: 20210914
  Receipt Date: 20221031
  Transmission Date: 20230113
  Serious: Yes (Other)
  Sender: FDA-Public Use
  Company Number: US-SA-SAC20210913000777

PATIENT
  Age: 51 Year
  Sex: Female

DRUGS (1)
  1. DUPIXENT [Suspect]
     Active Substance: DUPILUMAB
     Indication: Dermatitis atopic
     Dosage: 300 MG, QOW
     Route: 058
     Dates: start: 20210818

REACTIONS (11)
  - Ocular surface disease [Unknown]
  - Mental status changes [Unknown]
  - General physical condition abnormal [Unknown]
  - Paraesthesia [Unknown]
  - Fatigue [Unknown]
  - Ocular discomfort [Unknown]
  - Cystitis [Unknown]
  - Pain in extremity [Unknown]
  - Eye irritation [Unknown]
  - Dry eye [Unknown]
  - Product use issue [Unknown]

NARRATIVE: CASE EVENT DATE: 20210101
